FAERS Safety Report 8328905-X (Version None)
Quarter: 2012Q2

REPORT INFORMATION
  Report Type: 
  Country: None (occurrence: None)
  Receive Date: 20120502
  Receipt Date: 20100916
  Transmission Date: 20120825
  Serious: No
  Sender: FDA-Public Use
  Company Number: US-TEVA-2010004984

PATIENT
  Sex: Male
  Weight: 95.34 kg

DRUGS (12)
  1. NUVIGIL [Suspect]
     Indication: HYPERSOMNIA
     Dosage: 250 MILLIGRAM;
     Route: 048
     Dates: start: 20100422, end: 20100909
  2. OMEPRAZOLE [Concomitant]
  3. NAPROXEN [Concomitant]
  4. REGLAN [Concomitant]
  5. OXAZEPAM [Concomitant]
  6. PROPRANOLOL [Concomitant]
  7. VYTORIN [Concomitant]
     Indication: DYSLIPIDAEMIA
  8. PERCOCET [Concomitant]
  9. ELAVIL [Concomitant]
  10. LYRICA [Concomitant]
  11. FLONASE [Concomitant]
  12. BOTOX [Concomitant]

REACTIONS (1)
  - CLUSTER HEADACHE [None]
